FAERS Safety Report 18753895 (Version 2)
Quarter: 2021Q1

REPORT INFORMATION
  Report Type: Spontaneous
  Country: US (occurrence: US)
  Receive Date: 20210119
  Receipt Date: 20210119
  Transmission Date: 20210419
  Serious: Yes (Other)
  Sender: FDA-Public Use
  Company Number: US-MICRO LABS LIMITED-ML2021-00075

PATIENT
  Age: 67 Year
  Sex: Female

DRUGS (5)
  1. RITUXIMAB. [Concomitant]
     Active Substance: RITUXIMAB
  2. LEVETIRACETAM. [Suspect]
     Active Substance: LEVETIRACETAM
  3. METHOTREXATE. [Suspect]
     Active Substance: METHOTREXATE
     Dosage: 4271 MG/M2 ADJUSTED AS A EQUIVALENT TO 50% REDUCTION BASED ON A 24H CRCL OF 47 ML/MIN)
  4. TEMOZOLOMIDE. [Concomitant]
     Active Substance: TEMOZOLOMIDE
  5. LEUCOVORIN. [Concomitant]
     Active Substance: LEUCOVORIN
     Dosage: 50 MG Q6H INITIATED AT 24H

REACTIONS (3)
  - Drug interaction [Unknown]
  - Crystal nephropathy [Unknown]
  - Acute kidney injury [Unknown]
